FAERS Safety Report 4981132-6 (Version None)
Quarter: 2006Q2

REPORT INFORMATION
  Report Type: 
  Country: None (occurrence: None)
  Receive Date: 20060424
  Receipt Date: 20060413
  Transmission Date: 20061013
  Serious: Yes (Hospitalization)
  Sender: FDA-Public Use
  Company Number: PHHO2006US06174

PATIENT
  Age: 60 Year
  Sex: Male
  Weight: 113 kg

DRUGS (11)
  1. CGP 57148B [Suspect]
     Indication: GLIOBLASTOMA MULTIFORME
     Dosage: 400 MG, BID
     Route: 048
  2. CGP 57148B [Suspect]
     Dosage: 600 MG, BID
     Route: 048
     Dates: start: 20060304
  3. TEMODAR [Suspect]
     Indication: GLIOBLASTOMA MULTIFORME
     Dosage: 480 MG, QD
     Route: 048
     Dates: start: 20060307
  4. DILANTIN [Suspect]
  5. LISINOPRIL [Concomitant]
  6. METFORMIN [Concomitant]
  7. PEPCID [Concomitant]
  8. DECADRON [Concomitant]
  9. CELLCEPT [Concomitant]
  10. COENZYME Q10 [Concomitant]
  11. FISH OIL [Concomitant]

REACTIONS (10)
  - BLOOD CREATININE INCREASED [None]
  - CHOLELITHIASIS [None]
  - DEHYDRATION [None]
  - DRUG ERUPTION [None]
  - HYPERBILIRUBINAEMIA [None]
  - NAUSEA [None]
  - NEPHRITIS INTERSTITIAL [None]
  - SPLENOMEGALY [None]
  - URTICARIA [None]
  - VOMITING [None]
